FAERS Safety Report 18266295 (Version 6)
Quarter: 2021Q2

REPORT INFORMATION
  Report Type: Report from Study
  Country: UA (occurrence: UA)
  Receive Date: 20200915
  Receipt Date: 20210427
  Transmission Date: 20210717
  Serious: Yes (Hospitalization, Disabling)
  Sender: FDA-Public Use
  Company Number: UA-KARYOPHARM-2020KPT001046

PATIENT
  Age: 59 Year
  Sex: Female
  Weight: 69.4 kg

DRUGS (18)
  1. DEXAMETHASONE. [Suspect]
     Active Substance: DEXAMETHASONE
     Dosage: 10 MG, 2X/WEEK
     Route: 048
     Dates: start: 20200922
  2. ONDANSETRON [Concomitant]
     Active Substance: ONDANSETRON
     Indication: PROPHYLAXIS
     Dosage: 8 MG, BID
     Route: 048
     Dates: start: 20191001
  3. SELINEXOR [Suspect]
     Active Substance: SELINEXOR
     Indication: PLASMA CELL MYELOMA
     Dosage: 100 MG, WEEKLY
     Route: 048
     Dates: start: 20180911, end: 20190129
  4. SELINEXOR [Suspect]
     Active Substance: SELINEXOR
     Dosage: 80 MG, WEEKLY
     Route: 048
     Dates: start: 20190130, end: 202009
  5. VALAVIR [Concomitant]
     Indication: PROPHYLAXIS
     Dosage: 500 MG, QD
     Route: 048
     Dates: start: 20180911, end: 20200908
  6. BORTEZOMIB. [Suspect]
     Active Substance: BORTEZOMIB
     Indication: PLASMA CELL MYELOMA
     Dosage: 1.3 MG/M2, WEEKLY
     Route: 058
     Dates: start: 20180911, end: 20190501
  7. BORTEZOMIB. [Suspect]
     Active Substance: BORTEZOMIB
     Dosage: 1 MG/M2, WEEKLY
     Route: 058
     Dates: start: 20190502
  8. CALCIUM D3 VIT [Concomitant]
     Indication: PROPHYLAXIS
     Dosage: UNK UNK, WEEKLY
     Dates: start: 20190911
  9. CALCIUM D3 VIT [Concomitant]
     Dosage: 500 MG, QD
     Route: 048
     Dates: start: 20180911, end: 20200908
  10. DEXAMETHASONE. [Suspect]
     Active Substance: DEXAMETHASONE
     Dosage: 12 MG, 2X/WEEK
     Route: 048
     Dates: start: 20190319, end: 20200601
  11. DEXAMETHASONE. [Suspect]
     Active Substance: DEXAMETHASONE
     Dosage: 10 MG, 2X/WEEK
     Route: 048
     Dates: start: 20200602, end: 20200902
  12. CLARASTILL [Concomitant]
     Indication: CATARACT
     Dosage: 1 DF, BID
     Route: 047
     Dates: start: 20200520, end: 20200908
  13. SELINEXOR [Suspect]
     Active Substance: SELINEXOR
     Dosage: 60 MG, WEEKLY
     Route: 048
     Dates: start: 20200922
  14. DEXAMETHASONE. [Suspect]
     Active Substance: DEXAMETHASONE
     Indication: PLASMA CELL MYELOMA
     Dosage: 20 MG, 2X/WEEK
     Route: 048
     Dates: start: 20180911, end: 20190318
  15. TONORMA [Concomitant]
     Indication: PRODUCT USED FOR UNKNOWN INDICATION
     Dosage: 1 DF, QD
     Route: 048
     Dates: start: 201804
  16. OPTIX FORTE [Concomitant]
     Indication: CATARACT
     Dosage: 1 DF, BID
     Route: 047
     Dates: start: 20200520, end: 20200908
  17. PREDUCTAL [Concomitant]
     Active Substance: TRIMETAZIDINE DIHYDROCHLORIDE
     Indication: CATARACT
     Dosage: 1 DF, BID
     Route: 048
     Dates: start: 20200520, end: 20200908
  18. PARACETAMOL [Concomitant]
     Active Substance: ACETAMINOPHEN
     Indication: CATARACT
     Dosage: 500 MG, PRN
     Route: 048
     Dates: start: 20200727, end: 20200804

REACTIONS (1)
  - Cataract [Recovered/Resolved]

NARRATIVE: CASE EVENT DATE: 20200901
